FAERS Safety Report 13644127 (Version 1)
Quarter: 2017Q2

REPORT INFORMATION
  Report Type: Report from Study
  Country: TN (occurrence: TN)
  Receive Date: 20170612
  Receipt Date: 20170612
  Transmission Date: 20170830
  Serious: Yes (Death, Hospitalization)
  Sender: FDA-Public Use
  Company Number: TN-SA-2017SA104140

PATIENT
  Age: 72 Year
  Sex: Male

DRUGS (7)
  1. FAMODINE [Concomitant]
     Active Substance: FAMOTIDINE
     Route: 048
  2. CINCOR [Concomitant]
     Route: 048
  3. PLAVIX [Suspect]
     Active Substance: CLOPIDOGREL BISULFATE
     Indication: MYOCARDIAL INFARCTION
     Route: 048
     Dates: start: 20170105, end: 20170603
  4. ASPIRIN. [Concomitant]
     Active Substance: ASPIRIN
     Route: 048
  5. ATOR [Concomitant]
     Active Substance: ATORVASTATIN CALCIUM
     Route: 048
  6. LOVENOX [Concomitant]
     Active Substance: ENOXAPARIN SODIUM
     Route: 058
  7. LOPRIL [Concomitant]
     Active Substance: LISINOPRIL
     Route: 048

REACTIONS (3)
  - Ischaemic stroke [Fatal]
  - Respiratory failure [Not Recovered/Not Resolved]
  - Acute pulmonary oedema [Not Recovered/Not Resolved]

NARRATIVE: CASE EVENT DATE: 20170527
